FAERS Safety Report 9519409 (Version 1)
Quarter: 2013Q3

REPORT INFORMATION
  Report Type: Spontaneous
  Country: US (occurrence: None)
  Receive Date: 20130911
  Receipt Date: 20130911
  Transmission Date: 20140515
  Serious: Yes (Hospitalization)
  Sender: FDA-Public Use
  Company Number: None

PATIENT
  Age: 79 Year
  Sex: Male
  Weight: 90 kg

DRUGS (5)
  1. METOPROLOL [Suspect]
     Indication: CARDIOVASCULAR DISORDER
     Dosage: 75 MG BID PO
     Route: 048
     Dates: start: 20090930, end: 20130717
  2. METOPROLOL [Suspect]
     Indication: SURGERY
     Dosage: 75 MG BID PO
     Route: 048
     Dates: start: 20090930, end: 20130717
  3. METOPROLOL [Suspect]
     Indication: THERAPEUTIC PROCEDURE
     Dosage: 75 MG BID PO
     Route: 048
     Dates: start: 20090930, end: 20130717
  4. METOPROLOL [Suspect]
     Indication: CARDIAC FAILURE CONGESTIVE
     Dosage: 75 MG BID PO
     Route: 048
     Dates: start: 20090930, end: 20130717
  5. GABAPENTIN [Suspect]
     Indication: CARDIOMYOPATHY
     Dosage: 900 MG TID PO
     Route: 048
     Dates: start: 20130709, end: 20130717

REACTIONS (6)
  - Head injury [None]
  - Fall [None]
  - Bradycardia [None]
  - Hypotension [None]
  - Mental status changes [None]
  - Sedation [None]
